FAERS Safety Report 11306075 (Version 1)
Quarter: 2015Q3

REPORT INFORMATION
  Report Type: Spontaneous
  Country: BR (occurrence: BR)
  Receive Date: 20150723
  Receipt Date: 20150723
  Transmission Date: 20151125
  Serious: Yes (Hospitalization, Other)
  Sender: FDA-Public Use
  Company Number: BR-TEVA-578348ISR

PATIENT
  Age: 51 Year
  Sex: Male
  Weight: 62.5 kg

DRUGS (3)
  1. TEVAMETHO [Suspect]
     Active Substance: METHOTREXATE
     Route: 042
     Dates: start: 20150527, end: 20150617
  2. TEVAMETHO [Suspect]
     Active Substance: METHOTREXATE
     Indication: SQUAMOUS CELL CARCINOMA OF THE CERVIX
     Route: 042
     Dates: start: 20150410, end: 20150513
  3. METOCLOPRAMIDE. [Concomitant]
     Active Substance: METOCLOPRAMIDE
     Dosage: PRE CHEMOTHERAPY
     Route: 042

REACTIONS (5)
  - Febrile neutropenia [Recovered/Resolved]
  - Mucosal inflammation [Recovered/Resolved]
  - Tumour haemorrhage [Recovered/Resolved]
  - Pyrexia [Recovered/Resolved]
  - Pancytopenia [Recovered/Resolved]

NARRATIVE: CASE EVENT DATE: 201506
